FAERS Safety Report 8110070-5 (Version None)
Quarter: 2012Q1

REPORT INFORMATION
  Report Type: 
  Country: None (occurrence: None)
  Receive Date: 20120202
  Receipt Date: 20120127
  Transmission Date: 20120608
  Serious: Yes (Death, Life-Threatening, Hospitalization, Other)
  Sender: FDA-Public Use
  Company Number: NL-COVIDIEN/TYCO HEALTHCARE/MALLINCKRODT-T201102887

PATIENT
  Sex: Male
  Weight: 90 kg

DRUGS (9)
  1. ACETYLSALICYLIC ACID SRT [Concomitant]
     Dosage: 80 MG, QD
  2. ADALAT [Concomitant]
     Dosage: 30 MG, QD
  3. METFORMIN HCL [Concomitant]
     Dosage: 500 MG, BID
  4. INSULIN [Concomitant]
  5. LASIX [Concomitant]
     Dosage: 40 MG, BID
  6. OPTIRAY 160 [Suspect]
     Indication: ANGIOGRAM
     Dosage: 130 ML, SINGLE
     Route: 042
     Dates: start: 20110601, end: 20110601
  7. VALSARTAN [Concomitant]
     Dosage: 2 X 160 MG, QD
  8. LIPITOR [Concomitant]
     Dosage: 2 X 20 MG, BID
  9. SOTALOL HCL [Concomitant]
     Dosage: 80 MG, TID

REACTIONS (16)
  - HEPATIC FAILURE [None]
  - THROMBOCYTOPENIA [None]
  - SHOCK [None]
  - NEPHROPATHY TOXIC [None]
  - ACUTE MYOCARDIAL INFARCTION [None]
  - INFECTED SKIN ULCER [None]
  - VOLVULUS [None]
  - MULTI-ORGAN FAILURE [None]
  - PAIN IN EXTREMITY [None]
  - CARDIOGENIC SHOCK [None]
  - COLONIC HAEMATOMA [None]
  - WALKING DISABILITY [None]
  - RENAL FAILURE [None]
  - CARDIAC FAILURE [None]
  - HEPATIC CONGESTION [None]
  - HEPATIC HAEMATOMA [None]
